FAERS Safety Report 9728424 (Version 1)
Quarter: 2013Q4

REPORT INFORMATION
  Report Type: Spontaneous
  Country: JP (occurrence: JP)
  Receive Date: 20131204
  Receipt Date: 20131204
  Transmission Date: 20140711
  Serious: Yes (Other)
  Sender: FDA-Public Use
  Company Number: JP-ASTELLAS-2013JP013333

PATIENT
  Age: 58 Year
  Sex: Female

DRUGS (2)
  1. PROGRAF [Suspect]
     Indication: RHEUMATOID ARTHRITIS
     Dosage: 2 MG, UNKNOWN/D
     Route: 048
  2. BONOTEO [Suspect]
     Indication: OSTEOPOROSIS
     Dosage: UNK
     Route: 048

REACTIONS (2)
  - Intentional drug misuse [Unknown]
  - Renal haemorrhage [Unknown]
